FAERS Safety Report 9466885 (Version 1)
Quarter: 2013Q3

REPORT INFORMATION
  Report Type: Spontaneous
  Country: US (occurrence: US)
  Receive Date: 20130820
  Receipt Date: 20130820
  Transmission Date: 20140515
  Serious: No
  Sender: FDA-Public Use
  Company Number: US-009507513-1308USA008980

PATIENT
  Sex: Female

DRUGS (4)
  1. CLARITIN REDITABS [Suspect]
     Indication: HEADACHE
     Dosage: UNK, UNKNOWN
     Route: 048
     Dates: start: 20130816
  2. CLARITIN REDITABS [Suspect]
     Indication: URTICARIA
  3. CLARITIN REDITABS [Suspect]
     Indication: MEDICAL OBSERVATION
  4. PEPCID [Concomitant]
     Indication: URTICARIA
     Dosage: UNK, UNKNOWN

REACTIONS (2)
  - Drug ineffective for unapproved indication [Unknown]
  - Off label use [Unknown]
